FAERS Safety Report 5878838-3 (Version None)
Quarter: 2008Q3

REPORT INFORMATION
  Report Type: 
  Country: None (occurrence: None)
  Receive Date: 20080912
  Receipt Date: 20080902
  Transmission Date: 20090109
  Serious: Yes (Hospitalization, Other)
  Sender: FDA-Public Use
  Company Number: US-JNJFOC-20080900671

PATIENT
  Sex: Male
  Weight: 136.08 kg

DRUGS (11)
  1. REMICADE [Suspect]
     Indication: RHEUMATOID ARTHRITIS
     Dosage: FOR 3 YEARS
     Route: 042
  2. CRESTOR [Concomitant]
     Indication: BLOOD CHOLESTEROL
     Dosage: FOR 4 YEARS
  3. DIOVAN HCT [Concomitant]
     Indication: HYPERTENSION
     Dosage: 10/12.5 MG; FOR 4 YEARS
  4. ASPIRIN [Concomitant]
     Indication: CEREBROVASCULAR ACCIDENT PROPHYLAXIS
  5. ASPIRIN [Concomitant]
     Indication: ISCHAEMIC HEART DISEASE PROPHYLAXIS
     Dosage: FOR 2 YEARS
  6. ZANTAC [Concomitant]
     Indication: PROPHYLAXIS
     Dosage: FOR 4 YEARS
  7. NEURONTIN [Concomitant]
     Indication: MULTIPLE SCLEROSIS
     Dosage: FOR 3 YEARS
  8. METHOTREXATE [Concomitant]
     Indication: RHEUMATOID ARTHRITIS
     Dosage: FOR 3 YEARS
  9. FOLIC ACID [Concomitant]
     Indication: PROPHYLAXIS
     Dosage: FOR 3 YEARS
  10. PREDNISONE TAB [Concomitant]
     Indication: RHEUMATOID ARTHRITIS
     Dosage: FOR 3 YEARS
  11. HYDROXYCHLOROQUINE [Concomitant]
     Indication: RHEUMATOID ARTHRITIS
     Dosage: FOR 3 YEARS

REACTIONS (8)
  - ARTHRALGIA [None]
  - FALL [None]
  - GAIT DISTURBANCE [None]
  - HOSPITALISATION [None]
  - HYPOAESTHESIA [None]
  - OEDEMA PERIPHERAL [None]
  - SWELLING FACE [None]
  - WEIGHT INCREASED [None]
